FAERS Safety Report 15921459 (Version 3)
Quarter: 2019Q2

REPORT INFORMATION
  Report Type: Spontaneous
  Country: US (occurrence: US)
  Receive Date: 20190205
  Receipt Date: 20190417
  Transmission Date: 20190711
  Serious: Yes (Hospitalization, Other)
  Sender: FDA-Public Use
  Company Number: US-VIFOR (INTERNATIONAL) INC.-VIT-2019-00927

PATIENT
  Age: 60 Year
  Sex: Female
  Weight: 74.6 kg

DRUGS (1)
  1. MIRCERA [Suspect]
     Active Substance: METHOXY POLYETHYLENE GLYCOL-EPOETIN BETA
     Indication: NEPHROGENIC ANAEMIA
     Route: 040
     Dates: start: 20160325, end: 20160325

REACTIONS (5)
  - Chest discomfort [Recovered/Resolved]
  - Pruritus generalised [Recovered/Resolved]
  - Hypersensitivity [Recovered/Resolved]
  - Urticaria [Recovered/Resolved]
  - Blood pressure diastolic decreased [Recovered/Resolved]

NARRATIVE: CASE EVENT DATE: 20160325
